FAERS Safety Report 23352080 (Version 1)
Quarter: 2023Q4

REPORT INFORMATION
  Report Type: Report from Study
  Country: FR (occurrence: FR)
  Receive Date: 20231229
  Receipt Date: 20231229
  Transmission Date: 20240109
  Serious: Yes (Life-Threatening)
  Sender: FDA-Public Use
  Company Number: FR-PFIZER INC-202101165549

PATIENT
  Age: 77 Year
  Sex: Male
  Weight: 64 kg

DRUGS (14)
  1. AVIBACTAM SODIUM\CEFTAZIDIME [Suspect]
     Active Substance: AVIBACTAM SODIUM\CEFTAZIDIME
     Indication: Product used for unknown indication
     Dosage: DOSE DESC: 1G/0.25G, FREQUENCY 1, FORM: UNKNOWN
     Route: 065
     Dates: start: 20210809, end: 20210830
  2. AVIBACTAM SODIUM\CEFTAZIDIME [Suspect]
     Active Substance: AVIBACTAM SODIUM\CEFTAZIDIME
     Indication: Product used for unknown indication
     Dosage: DOSE DESC: 2G/0/5G, FREQUENCY 3, FORM: UNKNOWN
     Route: 065
     Dates: start: 20210717, end: 20210725
  3. CILASTATIN SODIUM\IMIPENEM [Suspect]
     Active Substance: CILASTATIN SODIUM\IMIPENEM
     Indication: Product used for unknown indication
     Dosage: DOSE DESC: UNK
     Route: 065
  4. HEPARIN [Concomitant]
     Active Substance: HEPARIN SODIUM
     Indication: Anticoagulant therapy
     Dosage: DOSE DESC: UNK
     Route: 042
     Dates: start: 202107
  5. MICAFUNGIN [Concomitant]
     Active Substance: MICAFUNGIN SODIUM
     Indication: Antifungal treatment
     Dosage: DOSE DESC: UNK
     Route: 042
     Dates: start: 20210730, end: 20210806
  6. NEFOPAM [Concomitant]
     Active Substance: NEFOPAM
     Indication: Analgesic therapy
     Dosage: DOSE DESC: UNK
     Route: 042
     Dates: start: 202107, end: 20210807
  7. PANTOPRAZOLE [Concomitant]
     Active Substance: PANTOPRAZOLE
     Indication: Antacid therapy
     Dosage: DOSE DESC: UNK
     Route: 042
     Dates: start: 202107, end: 20210906
  8. IMIPENEM [Concomitant]
     Active Substance: IMIPENEM
     Indication: Sepsis
     Dosage: DOSE DESC: UNK
     Route: 042
     Dates: start: 20210730, end: 20210806
  9. PAROXETINE [Concomitant]
     Active Substance: PAROXETINE
     Indication: Depression
     Dosage: DOSE DESC: UNK
     Dates: start: 202107
  10. HYDROXYZINE [Concomitant]
     Active Substance: HYDROXYZINE HYDROCHLORIDE
     Indication: Antiallergic therapy
     Dosage: DOSE DESC: UNK
     Dates: start: 202107, end: 20210803
  11. Lacteol [Concomitant]
     Indication: Supplementation therapy
     Dosage: DOSE DESC: UNK
     Dates: start: 202107, end: 20210820
  12. BISOPROLOL [Concomitant]
     Active Substance: BISOPROLOL\BISOPROLOL FUMARATE
     Indication: Angina pectoris
     Dosage: DOSE DESC: UNK
     Dates: start: 202107, end: 20210817
  13. LERCANIDIPINE HYDROCHLORIDE [Concomitant]
     Active Substance: LERCANIDIPINE HYDROCHLORIDE
     Indication: Hypertension
     Dosage: DOSE DESC: UNK
     Dates: start: 202107, end: 202107
  14. KAYEXALATE [Concomitant]
     Active Substance: SODIUM POLYSTYRENE SULFONATE
     Indication: Hyperkalaemia
     Dosage: DOSE DESC: UNK
     Dates: start: 202107, end: 202107

REACTIONS (3)
  - Generalised tonic-clonic seizure [Unknown]
  - Coma [Recovered/Resolved]
  - Epilepsy [Recovered/Resolved]

NARRATIVE: CASE EVENT DATE: 20210807
